FAERS Safety Report 25010317 (Version 1)
Quarter: 2025Q1

REPORT INFORMATION
  Report Type: Spontaneous
  Country: GB (occurrence: GB)
  Receive Date: 20250225
  Receipt Date: 20250225
  Transmission Date: 20250409
  Serious: Yes (Other)
  Sender: VERITY PHARMACEUTICALS INC.
  Company Number: GB-VER-202500002

PATIENT
  Age: 56 Year
  Sex: Female

DRUGS (4)
  1. TRIPTORELIN PAMOATE [Suspect]
     Active Substance: TRIPTORELIN PAMOATE
     Indication: Neuroendocrine carcinoma
     Route: 065
  2. TRIPTORELIN PAMOATE [Suspect]
     Active Substance: TRIPTORELIN PAMOATE
     Indication: Hormone receptor positive breast cancer
     Route: 065
  3. TAMOXIFEN [Suspect]
     Active Substance: TAMOXIFEN
     Indication: Neuroendocrine carcinoma
     Route: 065
     Dates: start: 2013
  4. TAMOXIFEN [Suspect]
     Active Substance: TAMOXIFEN
     Indication: Hormone receptor positive breast cancer
     Route: 065
     Dates: start: 2013

REACTIONS (2)
  - Neuroendocrine breast tumour [Unknown]
  - Neuroendocrine carcinoma metastatic [Unknown]

NARRATIVE: CASE EVENT DATE: 20150101
